FAERS Safety Report 9742739 (Version 1)
Quarter: 2013Q4

REPORT INFORMATION
  Report Type: Spontaneous
  Country: US (occurrence: US)
  Receive Date: 20131210
  Receipt Date: 20131210
  Transmission Date: 20140711
  Serious: No
  Sender: FDA-Public Use
  Company Number: US-GILEAD-2009-0025876

PATIENT
  Age: 81 Year
  Sex: Female
  Weight: 65 kg

DRUGS (12)
  1. LETAIRIS [Suspect]
     Indication: PULMONARY ARTERIAL HYPERTENSION
     Route: 048
     Dates: start: 20091125
  2. DILTIAZEM [Concomitant]
  3. COZAAR [Concomitant]
  4. HCTZ [Concomitant]
  5. ASA [Concomitant]
  6. PRILOSEC [Concomitant]
  7. BONIVA [Concomitant]
  8. POTASSIUM CHLORIDE [Concomitant]
  9. MULTIVITAMIN [Concomitant]
  10. ERGOCAL CIFER [Concomitant]
  11. CALCIUM/MAGNESIUM + D [Concomitant]
  12. FISH OIL [Concomitant]

REACTIONS (1)
  - Weight increased [Not Recovered/Not Resolved]
